FAERS Safety Report 7096642-8 (Version None)
Quarter: 2010Q4

REPORT INFORMATION
  Report Type: 
  Country: None (occurrence: None)
  Receive Date: 20101111
  Receipt Date: 20101102
  Transmission Date: 20110411
  Serious: Yes (Hospitalization)
  Sender: FDA-Public Use
  Company Number: PHHO2010JP13285

PATIENT
  Sex: Male

DRUGS (18)
  1. CERTICAN [Suspect]
     Indication: RENAL TRANSPLANT
     Dosage: 0.75 MG
     Route: 048
     Dates: start: 20090514
  2. CERTICAN [Suspect]
     Dosage: 1.5 MG
     Route: 048
     Dates: start: 20100407
  3. NEORAL [Suspect]
     Indication: RENAL TRANSPLANT
     Dosage: 200 MG
     Route: 048
     Dates: start: 20090513
  4. NEORAL [Suspect]
     Dosage: 100 MG, BID
     Route: 048
     Dates: start: 20090517
  5. DIOVAN [Suspect]
     Dosage: 20MG
     Route: 048
     Dates: start: 20090701
  6. MEDROL [Suspect]
     Indication: RENAL TRANSPLANT
  7. 8-HOUR BAYER [Suspect]
     Indication: THROMBOSIS PROPHYLAXIS
  8. MAGNESIUM OXIDE [Suspect]
     Indication: CONSTIPATION
  9. TAGAMET [Suspect]
     Indication: PROPHYLAXIS AGAINST GASTROINTESTINAL ULCER
  10. ALOSENN [Suspect]
     Indication: CONSTIPATION
  11. BASEN [Suspect]
     Indication: GLUCOSE TOLERANCE IMPAIRED
  12. SIMULECT [Concomitant]
     Indication: RENAL TRANSPLANT
  13. LIPITOR [Concomitant]
     Indication: HYPERLIPIDAEMIA
  14. ISODINE [Concomitant]
     Indication: INFECTION PROPHYLAXIS
  15. DALACIN T [Concomitant]
     Indication: ACNE
  16. NITROGEN LIQUID [Concomitant]
     Indication: SKIN PAPILLOMA
  17. KERATINAMIN [Concomitant]
     Indication: HYPERKERATOSIS PALMARIS AND PLANTARIS
  18. PRIDOL [Concomitant]
     Indication: PROPHYLAXIS AGAINST TRANSPLANT REJECTION

REACTIONS (4)
  - BLOOD CREATININE INCREASED [None]
  - CHRONIC ALLOGRAFT NEPHROPATHY [None]
  - KIDNEY TRANSPLANT REJECTION [None]
  - RENAL TUBULAR DISORDER [None]
